FAERS Safety Report 14457263 (Version 6)
Quarter: 2018Q2

REPORT INFORMATION
  Report Type: Report from Study
  Country: US (occurrence: US)
  Receive Date: 20180130
  Receipt Date: 20180530
  Transmission Date: 20180711
  Serious: Yes (Other)
  Sender: FDA-Public Use
  Company Number: US-JNJFOC-20170213301

PATIENT
  Age: 68 Year
  Sex: Male

DRUGS (28)
  1. IBRUTINIB [Suspect]
     Active Substance: IBRUTINIB
     Indication: B-CELL SMALL LYMPHOCYTIC LYMPHOMA RECURRENT
     Route: 048
     Dates: start: 20160929
  2. FLOMAX [Concomitant]
     Active Substance: TAMSULOSIN HYDROCHLORIDE
  3. TESSALON [Concomitant]
     Active Substance: BENZONATATE
  4. SALAGEN [Concomitant]
     Active Substance: PILOCARPINE HYDROCHLORIDE
  5. MULTIVITAMINS [Concomitant]
     Active Substance: VITAMINS
  6. IBRUTINIB [Suspect]
     Active Substance: IBRUTINIB
     Indication: B-CELL SMALL LYMPHOCYTIC LYMPHOMA RECURRENT
     Route: 048
     Dates: start: 20161229
  7. IBRUTINIB [Suspect]
     Active Substance: IBRUTINIB
     Indication: B-CELL SMALL LYMPHOCYTIC LYMPHOMA RECURRENT
     Route: 048
     Dates: start: 20161205, end: 20170713
  8. FLOVENT [Concomitant]
     Active Substance: FLUTICASONE PROPIONATE
  9. JANUVIA [Concomitant]
     Active Substance: SITAGLIPTIN PHOSPHATE
  10. ZINC. [Concomitant]
     Active Substance: ZINC
  11. PRILOSEC [Concomitant]
     Active Substance: OMEPRAZOLE MAGNESIUM
  12. BIOTENE NOS [Concomitant]
     Active Substance: CETYLPYRIDINIUM CHLORIDE OR SODIUM FLUORIDE OR SODIUM MONOFLUOROPHOSPHATE OR GLUCOSE OXIDASE\LACTOFERRIN\LACTOPEROXIDASE BOVINE\LYSOZYME
  13. FLEXERIL [Concomitant]
     Active Substance: CYCLOBENZAPRINE HYDROCHLORIDE
  14. DEXAMETHASONE. [Concomitant]
     Active Substance: DEXAMETHASONE
  15. GLIPIZIDE. [Concomitant]
     Active Substance: GLIPIZIDE
  16. NEURONTIN [Concomitant]
     Active Substance: GABAPENTIN
  17. FINASTERIDE. [Concomitant]
     Active Substance: FINASTERIDE
  18. LISINOPRIL. [Concomitant]
     Active Substance: LISINOPRIL
  19. FLONASE [Concomitant]
     Active Substance: FLUTICASONE PROPIONATE
  20. ZOCOR [Concomitant]
     Active Substance: SIMVASTATIN
  21. CHERATUSSIN [Concomitant]
     Active Substance: AMMONIUM CHLORIDE\DEXTROMETHORPHAN\SODIUM CITRATE
  22. AMBIEN [Concomitant]
     Active Substance: ZOLPIDEM TARTRATE
  23. GLUCOPHAGE [Concomitant]
     Active Substance: METFORMIN HYDROCHLORIDE
  24. VENTOLIN [Concomitant]
     Active Substance: ALBUTEROL SULFATE
  25. TYLENOL WITH CODEINE [Concomitant]
     Active Substance: ACETAMINOPHEN\CODEINE PHOSPHATE
  26. TYLENOL [Concomitant]
     Active Substance: ACETAMINOPHEN
  27. SINGULAIR [Concomitant]
     Active Substance: MONTELUKAST SODIUM
  28. IBRUTINIB [Suspect]
     Active Substance: IBRUTINIB
     Indication: B-CELL SMALL LYMPHOCYTIC LYMPHOMA RECURRENT
     Route: 048
     Dates: start: 20160812

REACTIONS (23)
  - Dry skin [Not Recovered/Not Resolved]
  - Localised infection [Not Recovered/Not Resolved]
  - Cough [Not Recovered/Not Resolved]
  - Vein disorder [Not Recovered/Not Resolved]
  - Arthropod bite [Not Recovered/Not Resolved]
  - Onycholysis [Recovering/Resolving]
  - Nausea [Not Recovered/Not Resolved]
  - Foot operation [Recovering/Resolving]
  - Oral surgery [Recovering/Resolving]
  - Nail discolouration [Not Recovered/Not Resolved]
  - Incorrect dose administered [Unknown]
  - Procedural pain [Recovering/Resolving]
  - Diabetic vascular disorder [Recovered/Resolved]
  - Headache [Not Recovered/Not Resolved]
  - Nail disorder [Not Recovered/Not Resolved]
  - Fatigue [Not Recovered/Not Resolved]
  - Nasopharyngitis [Not Recovered/Not Resolved]
  - Rhinorrhoea [Unknown]
  - Limb discomfort [Not Recovered/Not Resolved]
  - Off label use [Unknown]
  - Pain of skin [Not Recovered/Not Resolved]
  - Drug dose omission [Unknown]
  - Pruritus [Not Recovered/Not Resolved]

NARRATIVE: CASE EVENT DATE: 201704
